FAERS Safety Report 20357751 (Version 1)
Quarter: 2022Q1

REPORT INFORMATION
  Report Type: Spontaneous
  Country: US (occurrence: US)
  Receive Date: 20220120
  Receipt Date: 20220120
  Transmission Date: 20220423
  Serious: Yes (Other)
  Sender: FDA-Public Use
  Company Number: US-TEVA-2022-US-1999110

PATIENT
  Sex: Male

DRUGS (3)
  1. SELENIUM SULFIDE [Suspect]
     Active Substance: SELENIUM SULFIDE
     Indication: Scrotal erythema
     Route: 065
  2. AMOXICILLIN\CLAVULANIC ACID [Concomitant]
     Active Substance: AMOXICILLIN\CLAVULANIC ACID
     Indication: Chronic sinusitis
     Route: 065
  3. CEFUROXIME [Concomitant]
     Active Substance: CEFUROXIME
     Indication: Chronic sinusitis
     Route: 065

REACTIONS (2)
  - Dry skin [Unknown]
  - Skin exfoliation [Unknown]
